FAERS Safety Report 6786860-8 (Version None)
Quarter: 2010Q2

REPORT INFORMATION
  Report Type: 
  Country: None (occurrence: None)
  Receive Date: 20100623
  Receipt Date: 20100614
  Transmission Date: 20101027
  Serious: Yes (Hospitalization)
  Sender: FDA-Public Use
  Company Number: FR-GENENTECH-303096

PATIENT
  Sex: Male
  Weight: 100 kg

DRUGS (7)
  1. RITUXIMAB [Suspect]
     Indication: MANTLE CELL LYMPHOMA
     Dosage: 750 MG, QAM
     Route: 042
     Dates: start: 20090810
  2. CISPLATIN [Suspect]
     Indication: MANTLE CELL LYMPHOMA
     Dosage: 200 MG, QAM
     Route: 042
     Dates: start: 20090810
  3. CISPLATIN [Suspect]
     Dosage: 750 MG, QAM
     Route: 042
     Dates: start: 20091015
  4. CYTARABINE [Suspect]
     Indication: MANTLE CELL LYMPHOMA
     Dosage: 8 G, QAM
     Route: 042
     Dates: start: 20090810
  5. CYTARABINE [Suspect]
     Dosage: 8 MG, QAM
     Route: 042
     Dates: start: 20091016
  6. DEXAMETHASONE [Suspect]
     Indication: MANTLE CELL LYMPHOMA
     Dosage: 40 MG, QAM
     Route: 042
     Dates: start: 20090810, end: 20090813
  7. DEXAMETHASONE [Suspect]
     Dosage: 40 MG, QAM
     Route: 042
     Dates: start: 20091016, end: 20091019

REACTIONS (4)
  - DERMATITIS ALLERGIC [None]
  - FEBRILE BONE MARROW APLASIA [None]
  - PROSTATIC ADENOMA [None]
  - THROMBOPHLEBITIS [None]
